FAERS Safety Report 15478774 (Version 1)
Quarter: 2018Q4

REPORT INFORMATION
  Report Type: Spontaneous
  Country: US (occurrence: US)
  Receive Date: 20181003
  Receipt Date: 20181003
  Transmission Date: 20190205
  Serious: Yes (Disabling)
  Sender: FDA-Public Use
  Company Number: None

PATIENT
  Age: 54 Year
  Sex: Female
  Weight: 81.65 kg

DRUGS (22)
  1. MOTILIUM (FROM CANADA) [Concomitant]
  2. AMITIZA 8 [Concomitant]
  3. ZANTAC [Concomitant]
     Active Substance: RANITIDINE HYDROCHLORIDE
  4. MIRALAX [Concomitant]
     Active Substance: POLYETHYLENE GLYCOL 3350
  5. COQ 10 [Concomitant]
     Active Substance: UBIDECARENONE
  6. AZITHROMYCIN ANHYDROUS. [Suspect]
     Active Substance: AZITHROMYCIN ANHYDROUS
     Indication: IMPAIRED GASTRIC EMPTYING
     Dosage: ?          QUANTITY:1 TOT - TOTAL;?
     Route: 048
     Dates: start: 20170804, end: 20180504
  7. WELLLLBUTRIN [Concomitant]
  8. ACTIVAN [Concomitant]
  9. BONETREX [Concomitant]
  10. ALLEGRA [Concomitant]
     Active Substance: FEXOFENADINE HYDROCHLORIDE
  11. GNC MULTIVITAMIN [Concomitant]
  12. GNC TRIFLEX (JOINTS) [Concomitant]
  13. PROGESTERONE. [Concomitant]
     Active Substance: PROGESTERONE
  14. PROBIOTIC [Concomitant]
     Active Substance: PROBIOTICS NOS
  15. CYMBALTA [Concomitant]
     Active Substance: DULOXETINE HYDROCHLORIDE
  16. RITALIN LA 40 [Concomitant]
  17. NO DRUG NAME [Concomitant]
  18. OMEGA 3-6-9 [Concomitant]
     Active Substance: FISH OIL
  19. ABILIFY [Concomitant]
     Active Substance: ARIPIPRAZOLE
  20. BENADRYL [Concomitant]
     Active Substance: DIPHENHYDRAMINE HYDROCHLORIDE
  21. NUVIGIL [Concomitant]
     Active Substance: ARMODAFINIL
  22. NORCO (PRN FOR PAINFUL PERIODS) [Concomitant]

REACTIONS (2)
  - Product substitution [None]
  - Deafness unilateral [None]
